FAERS Safety Report 5614709-5 (Version None)
Quarter: 2008Q1

REPORT INFORMATION
  Report Type: 
  Country: None (occurrence: None)
  Receive Date: 20080131
  Receipt Date: 20080117
  Transmission Date: 20080703
  Serious: Yes (Other)
  Sender: FDA-Public Use
  Company Number: 2008S1000037

PATIENT
  Age: 52 Year
  Sex: Male

DRUGS (9)
  1. CUBICIN [Suspect]
     Indication: ENDOCARDITIS
     Dosage: 150 MG; IV
     Route: 042
     Dates: start: 20071219, end: 20080101
  2. PANTOPRAZOLE [Concomitant]
  3. CLEMASTINE FUMARATE [Concomitant]
  4. FUROSEMIDE [Concomitant]
  5. MARCUMAR [Concomitant]
  6. POTASSIUM CHLORIDE [Concomitant]
  7. OXAZEPAM [Concomitant]
  8. BETA BLOCKING AGENTS [Concomitant]
  9. GENTAMICIN [Concomitant]

REACTIONS (1)
  - AGRANULOCYTOSIS [None]
